FAERS Safety Report 11430964 (Version 1)
Quarter: 2015Q3

REPORT INFORMATION
  Report Type: Spontaneous
  Country: US (occurrence: US)
  Receive Date: 20150828
  Receipt Date: 20150828
  Transmission Date: 20151125
  Serious: Yes (Hospitalization)
  Sender: FDA-Public Use
  Company Number: US-BIOGENIDEC-2015BI117393

PATIENT
  Age: 63 Year
  Sex: Male

DRUGS (1)
  1. TECFIDERA [Suspect]
     Active Substance: DIMETHYL FUMARATE
     Indication: MULTIPLE SCLEROSIS
     Route: 048
     Dates: start: 201403

REACTIONS (19)
  - Hallucination [Recovered/Resolved]
  - Memory impairment [Not Recovered/Not Resolved]
  - Scrotal oedema [Recovered/Resolved]
  - Weight decreased [Recovered/Resolved]
  - Confusional state [Not Recovered/Not Resolved]
  - Urethral disorder [Recovered/Resolved]
  - Renal failure [Not Recovered/Not Resolved]
  - Partial seizures [Recovered/Resolved]
  - Blood glucose decreased [Recovered/Resolved]
  - Tendon rupture [Not Recovered/Not Resolved]
  - Blood potassium increased [Recovered/Resolved]
  - Device kink [Recovered/Resolved]
  - Bone lesion [Not Recovered/Not Resolved]
  - Fall [Recovered/Resolved]
  - Rotator cuff syndrome [Not Recovered/Not Resolved]
  - Protein total decreased [Not Recovered/Not Resolved]
  - Diabetic coma [Recovered/Resolved]
  - Pneumonia [Recovered/Resolved]
  - Red blood cell count decreased [Not Recovered/Not Resolved]

NARRATIVE: CASE EVENT DATE: 2015
